FAERS Safety Report 8338204-8 (Version None)
Quarter: 2012Q2

REPORT INFORMATION
  Report Type: 
  Country: None (occurrence: None)
  Receive Date: 20120504
  Receipt Date: 20120427
  Transmission Date: 20120825
  Serious: No
  Sender: FDA-Public Use
  Company Number: US-B.I. PHARMACEUTICALS,INC./RIDGEFIELD-2012-BP-09673BP

PATIENT
  Age: 51 Year
  Sex: Female

DRUGS (5)
  1. ZANTAC 150 [Suspect]
     Indication: GASTROOESOPHAGEAL REFLUX DISEASE
     Dosage: 450 MG
     Route: 048
     Dates: start: 20120201
  2. ZANTAC 150 [Suspect]
     Indication: BARRETT'S OESOPHAGUS
  3. LORAZEPAM [Concomitant]
     Indication: ANXIETY
     Route: 048
  4. LEVOTHYROXINE SODIUM [Concomitant]
     Indication: HYPOTHYROIDISM
     Dosage: 75 MCG
     Route: 048
  5. SOMA [Concomitant]
     Indication: MUSCLE SPASMS
     Route: 048

REACTIONS (3)
  - ERUCTATION [None]
  - DIARRHOEA [None]
  - ARTHRALGIA [None]
